FAERS Safety Report 17459510 (Version 1)
Quarter: 2020Q1

REPORT INFORMATION
  Report Type: Spontaneous
  Country: US (occurrence: US)
  Receive Date: 20200225
  Receipt Date: 20200225
  Transmission Date: 20200409
  Serious: No
  Sender: FDA-Public Use
  Company Number: US-ROCHE-2330943

PATIENT
  Age: 15 Year
  Sex: Male

DRUGS (3)
  1. LEXAPRO [Concomitant]
     Active Substance: ESCITALOPRAM OXALATE
  2. NUTROPIN AQ [Suspect]
     Active Substance: SOMATROPIN
     Indication: PRODUCT USED FOR UNKNOWN INDICATION
     Dosage: NUTROPIN AQ NUSPIN 20 INJ
     Route: 065
     Dates: start: 201903
  3. SEROQUEL [Concomitant]
     Active Substance: QUETIAPINE FUMARATE

REACTIONS (1)
  - Depression [Unknown]

NARRATIVE: CASE EVENT DATE: 20190531
